FAERS Safety Report 17347461 (Version 1)
Quarter: 2020Q1

REPORT INFORMATION
  Report Type: Report from Study
  Country: US (occurrence: US)
  Receive Date: 20200129
  Receipt Date: 20200129
  Transmission Date: 20200409
  Serious: No
  Sender: FDA-Public Use
  Company Number: US-EXELIXIS-CABO-19023224

PATIENT
  Age: 68 Year
  Sex: Male

DRUGS (1)
  1. CABOMETYX [Suspect]
     Active Substance: CABOZANTINIB S-MALATE
     Indication: HEPATIC CANCER
     Dosage: 40 MG,QD (AT 5 PM WITHOUT FOOD)
     Dates: start: 20190726, end: 201909

REACTIONS (4)
  - Dry skin [Not Recovered/Not Resolved]
  - Fatigue [Recovering/Resolving]
  - Tumour marker increased [Not Recovered/Not Resolved]
  - Drug ineffective for unapproved indication [Unknown]

NARRATIVE: CASE EVENT DATE: 20190821
